FAERS Safety Report 10475379 (Version 1)
Quarter: 2014Q3

REPORT INFORMATION
  Report Type: Spontaneous
  Country: US (occurrence: None)
  Receive Date: 20140924
  Receipt Date: 20140924
  Transmission Date: 20150326
  Serious: Yes (Hospitalization)
  Sender: FDA-Public Use
  Company Number: None

PATIENT
  Age: 75 Year
  Sex: Female

DRUGS (1)
  1. STIVARGA [Suspect]
     Active Substance: REGORAFENIB
     Indication: COLON CANCER
     Route: 048
     Dates: start: 20140828, end: 20140908

REACTIONS (4)
  - Abasia [None]
  - Incoherent [None]
  - Decreased appetite [None]
  - Dysstasia [None]

NARRATIVE: CASE EVENT DATE: 20140908
